FAERS Safety Report 9188538 (Version 1)
Quarter: 2013Q1

REPORT INFORMATION
  Report Type: Spontaneous
  Country: AR (occurrence: AR)
  Receive Date: 20130325
  Receipt Date: 20130325
  Transmission Date: 20140127
  Serious: Yes (Other)
  Sender: FDA-Public Use
  Company Number: PHHY2013AR028992

PATIENT
  Sex: Female

DRUGS (1)
  1. EXELON PATCH [Suspect]
     Indication: SENILE DEMENTIA
     Dosage: UNK UKN, UNK
     Route: 062
     Dates: start: 201212

REACTIONS (2)
  - Renal failure [Recovering/Resolving]
  - Disease recurrence [Recovering/Resolving]
